FAERS Safety Report 10662244 (Version 1)
Quarter: 2014Q4

REPORT INFORMATION
  Report Type: Spontaneous
  Country: US (occurrence: None)
  Receive Date: 20141217
  Receipt Date: 20141217
  Transmission Date: 20150529
  Serious: No
  Sender: FDA-Public Use
  Company Number: None

PATIENT
  Age: 2 Year
  Sex: Female
  Weight: 9.98 kg

DRUGS (2)
  1. TAMIFLU [Suspect]
     Active Substance: OSELTAMIVIR PHOSPHATE
     Indication: INFLUENZA
     Route: 048
     Dates: start: 20141213, end: 20141215
  2. HYLAND^S TINY COLD TABLET [Concomitant]

REACTIONS (5)
  - Agitation [None]
  - Nightmare [None]
  - Sleep disorder [None]
  - Incoherent [None]
  - Aggression [None]

NARRATIVE: CASE EVENT DATE: 20141213
